FAERS Safety Report 21172943 (Version 1)
Quarter: 2022Q3

REPORT INFORMATION
  Report Type: Spontaneous
  Country: US (occurrence: None)
  Receive Date: 20220804
  Receipt Date: 20220804
  Transmission Date: 20221027
  Serious: Yes (Hospitalization)
  Sender: FDA-Public Use
  Company Number: None

PATIENT
  Age: 57 Year
  Sex: Female

DRUGS (1)
  1. ICATIBANT ACETATE [Suspect]
     Active Substance: ICATIBANT ACETATE
     Dosage: 30MG PRN SUBCUTANEOUS?
     Route: 058

REACTIONS (2)
  - Swelling face [None]
  - Eye swelling [None]

NARRATIVE: CASE EVENT DATE: 20220731
